FAERS Safety Report 6422944-1 (Version None)
Quarter: 2009Q4

REPORT INFORMATION
  Report Type: 
  Country: None (occurrence: None)
  Receive Date: 20091102
  Receipt Date: 20091027
  Transmission Date: 20100525
  Serious: Yes (Life-Threatening, Hospitalization, Other)
  Sender: FDA-Public Use
  Company Number: PHHY2008GB12503

PATIENT
  Age: 66 Year
  Sex: Male

DRUGS (16)
  1. DICLOFENAC [Suspect]
     Indication: GOUT
     Dosage: 50 MG, BID
     Dates: start: 20080605, end: 20080607
  2. ATORVASTATIN [Suspect]
     Dosage: 80 MG/DAY
  3. EZETIMIBE [Suspect]
     Dosage: 10 MG/DAY
  4. ALLOPURINOL [Concomitant]
  5. ACETYLSALICYLIC ACID [Concomitant]
  6. ATENOLOL [Concomitant]
  7. DIHYDROCODEINE BITARTRATE INJ [Concomitant]
  8. DOXAZOSIN MESYLATE [Concomitant]
  9. FERROUS SULFATE TAB [Concomitant]
  10. FUROSEMIDE [Concomitant]
  11. LANSOPRAZOLE [Concomitant]
  12. METFORMIN HCL [Concomitant]
  13. ACETAMINOPHEN [Concomitant]
  14. PERINDOPRIL [Concomitant]
  15. PREGABALIN [Concomitant]
  16. TADALAFIL [Concomitant]

REACTIONS (7)
  - BLOOD CREATINE PHOSPHOKINASE INCREASED [None]
  - BLOOD POTASSIUM INCREASED [None]
  - CIRCULATORY COLLAPSE [None]
  - MALAISE [None]
  - METABOLIC ACIDOSIS [None]
  - RENAL FAILURE ACUTE [None]
  - RHABDOMYOLYSIS [None]
